FAERS Safety Report 4440505-0 (Version None)
Quarter: 2004Q3

REPORT INFORMATION
  Report Type: 
  Country: None (occurrence: None)
  Receive Date: 20040903
  Receipt Date: 20040831
  Transmission Date: 20050211
  Serious: Yes (Life-Threatening)
  Sender: FDA-Public Use
  Company Number: PHFR2004GB03352

PATIENT
  Age: 52 Year
  Sex: Female

DRUGS (12)
  1. VOLTAREN [Suspect]
     Indication: PAIN
     Dosage: 75 MG, BID
     Route: 048
     Dates: start: 20040702, end: 20040706
  2. ROFECOXIB [Suspect]
     Indication: PAIN
     Dosage: 25 MG, QD
     Route: 048
     Dates: start: 20040625
  3. DOMPERIDONE [Concomitant]
     Dosage: 20 MG, TID
     Route: 065
  4. WARFARIN SODIUM [Concomitant]
     Route: 065
  5. CETIRIZINE HCL [Concomitant]
     Dosage: 10 MG, QD
     Route: 065
  6. LANSOPRAZOLE [Concomitant]
     Dosage: 30 MG, QD
     Route: 065
  7. PARACETAMOL [Concomitant]
     Dosage: 1 G, QID
     Route: 065
  8. GABAPENTIN [Concomitant]
     Indication: PAIN
     Dosage: 300 MG, TID
     Route: 048
  9. ORAMORPH SR [Concomitant]
     Dosage: 5-10 MG PRN
     Route: 048
  10. FENTANYL [Concomitant]
     Dosage: 25 UG, QH
     Route: 061
  11. AMITRIPTYLINE HCL [Concomitant]
     Dosage: 50 MG, QD
     Route: 048
  12. CISPLATIN [Concomitant]
     Indication: CHEMOTHERAPY
     Dosage: UNK, UNK
     Route: 065

REACTIONS (2)
  - GLOMERULAR FILTRATION RATE DECREASED [None]
  - HYPERKALAEMIA [None]
